FAERS Safety Report 6913445-2 (Version None)
Quarter: 2010Q3

REPORT INFORMATION
  Report Type: 
  Country: None (occurrence: None)
  Receive Date: 20100804
  Receipt Date: 20100804
  Transmission Date: 20110219
  Serious: Yes (Other)
  Sender: FDA-Public Use
  Company Number: None

PATIENT
  Age: 60 Year
  Sex: Female
  Weight: 62.5964 kg

DRUGS (2)
  1. NUVIGIL [Suspect]
     Indication: DISTURBANCE IN ATTENTION
     Dosage: 150 MG 1X DAILY MOUTH
     Route: 048
     Dates: start: 20100528
  2. NUVIGIL [Suspect]
     Indication: DISTURBANCE IN ATTENTION
     Dosage: 150 MG 1X DAILY MOUTH
     Route: 048
     Dates: start: 20100615

REACTIONS (2)
  - ARTHRALGIA [None]
  - JOINT SWELLING [None]
